FAERS Safety Report 18182767 (Version 1)
Quarter: 2020Q3

REPORT INFORMATION
  Report Type: Other
  Country: FR (occurrence: FR)
  Receive Date: 20200821
  Receipt Date: 20200821
  Transmission Date: 20201103
  Serious: No
  Sender: FDA-Public Use
  Company Number: FR-COVIS PHARMA B.V.-2013P1014723

PATIENT
  Age: 45 Year
  Sex: Female
  Weight: 47 kg

DRUGS (3)
  1. RILUZOLE. [Suspect]
     Active Substance: RILUZOLE
     Indication: AMYOTROPHIC LATERAL SCLEROSIS
     Dosage: 50 MG
     Route: 048
     Dates: start: 20020910, end: 20021016
  2. HOMEOPATIC PREPARATION [Concomitant]
     Active Substance: UNSPECIFIED INGREDIENT
  3. RODOGYL [Concomitant]
     Active Substance: METRONIDAZOLE\SPIRAMYCIN
     Indication: TOOTH INFECTION
     Route: 048
     Dates: start: 20021002, end: 20021006

REACTIONS (1)
  - Pancreatitis acute [Recovering/Resolving]

NARRATIVE: CASE EVENT DATE: 20021015
